FAERS Safety Report 8922402 (Version 3)
Quarter: 2013Q2

REPORT INFORMATION
  Report Type: Spontaneous
  Country: US (occurrence: US)
  Receive Date: 20121123
  Receipt Date: 20130423
  Transmission Date: 20140414
  Serious: No
  Sender: FDA-Public Use
  Company Number: US-009507513-1211USA005430

PATIENT
  Sex: Female
  Weight: 98.87 kg

DRUGS (2)
  1. PEGINTRON [Suspect]
     Indication: HEPATITIS C
     Dosage: UNK
     Route: 058
     Dates: start: 20121012, end: 20130401
  2. RIBAVIRIN [Suspect]
     Dosage: UNK

REACTIONS (2)
  - Injection site erythema [Not Recovered/Not Resolved]
  - Drug dose omission [Unknown]
